FAERS Safety Report 18732620 (Version 3)
Quarter: 2021Q1

REPORT INFORMATION
  Report Type: Spontaneous
  Country: US (occurrence: US)
  Receive Date: 20210113
  Receipt Date: 20210310
  Transmission Date: 20210419
  Serious: No
  Sender: FDA-Public Use
  Company Number: US-BIOGEN-2020BI00938781

PATIENT
  Age: 60 Year
  Sex: Female

DRUGS (4)
  1. TYSABRI [Suspect]
     Active Substance: NATALIZUMAB
     Indication: MULTIPLE SCLEROSIS
     Dosage: INFUSED OVER 1 HOUR
     Route: 042
     Dates: start: 20170428
  2. TYSABRI [Suspect]
     Active Substance: NATALIZUMAB
     Dosage: INFUSED OVER 1 HOUR
     Route: 042
  3. TYSABRI [Suspect]
     Active Substance: NATALIZUMAB
     Dosage: TAKE EVERY SIX WEEKS AFTER NEXT INFUSION AND THEN EVERY 8 WEEKS
     Route: 065
  4. TYSABRI [Suspect]
     Active Substance: NATALIZUMAB
     Dosage: TAKE EVERY SIX WEEKS AFTER NEXT INFUSION AND THEN EVERY 8 WEEKS
     Route: 065

REACTIONS (3)
  - COVID-19 [Unknown]
  - Memory impairment [Unknown]
  - Prescribed underdose [Unknown]

NARRATIVE: CASE EVENT DATE: 202010
